FAERS Safety Report 11840474 (Version 1)
Quarter: 2015Q4

REPORT INFORMATION
  Report Type: Spontaneous
  Country: US (occurrence: US)
  Receive Date: 20151216
  Receipt Date: 20151216
  Transmission Date: 20160305
  Serious: No
  Sender: FDA-Public Use
  Company Number: US-TEVA-592565USA

PATIENT
  Age: 58 Year
  Sex: Female

DRUGS (12)
  1. CAPECITABINE. [Suspect]
     Active Substance: CAPECITABINE
     Route: 065
     Dates: start: 201403
  2. FUROSEMIDE. [Concomitant]
     Active Substance: FUROSEMIDE
  3. HYDROXYZINE [Concomitant]
     Active Substance: HYDROXYZINE\HYDROXYZINE HYDROCHLORIDE
  4. MVI [Concomitant]
     Active Substance: VITAMINS
  5. PEPCID AC [Concomitant]
     Active Substance: FAMOTIDINE
  6. CLONIDINE. [Concomitant]
     Active Substance: CLONIDINE
  7. KLORCON [Concomitant]
  8. SENNA [Concomitant]
     Active Substance: SENNA LEAF\SENNOSIDES\SENNOSIDES A AND B
  9. VITAMIN B12 [Concomitant]
     Active Substance: CYANOCOBALAMIN
  10. NIFEDICAL XL [Concomitant]
     Active Substance: NIFEDIPINE
  11. REGLAN [Concomitant]
     Active Substance: METOCLOPRAMIDE HYDROCHLORIDE
  12. MAO [Concomitant]

REACTIONS (1)
  - Muscle spasms [Not Recovered/Not Resolved]

NARRATIVE: CASE EVENT DATE: 201503
